FAERS Safety Report 24686625 (Version 1)
Quarter: 2024Q4

REPORT INFORMATION
  Report Type: Spontaneous
  Country: PH (occurrence: PH)
  Receive Date: 20241202
  Receipt Date: 20241202
  Transmission Date: 20250115
  Serious: Yes (Other)
  Sender: PFIZER
  Company Number: PH-PFIZER INC-PV202400154444

PATIENT
  Age: 45 Year
  Sex: Female

DRUGS (1)
  1. BOSUTINIB [Suspect]
     Active Substance: BOSUTINIB
     Indication: Chronic myeloid leukaemia
     Dosage: 500 MG

REACTIONS (2)
  - Philadelphia chromosome positive [Unknown]
  - Rash [Unknown]

NARRATIVE: CASE EVENT DATE: 20240401
